FAERS Safety Report 25024479 (Version 1)
Quarter: 2025Q1

REPORT INFORMATION
  Report Type: Spontaneous
  Country: GB (occurrence: GB)
  Receive Date: 20250228
  Receipt Date: 20250228
  Transmission Date: 20250409
  Serious: Yes (Other)
  Sender: PFIZER
  Company Number: None

PATIENT
  Sex: Male

DRUGS (1)
  1. VARENICLINE TARTRATE [Suspect]
     Active Substance: VARENICLINE TARTRATE

REACTIONS (3)
  - Oesophageal food impaction [Recovering/Resolving]
  - Dysphagia [Recovering/Resolving]
  - Flatulence [Recovering/Resolving]
